FAERS Safety Report 6782882-1 (Version None)
Quarter: 2010Q2

REPORT INFORMATION
  Report Type: 
  Country: None (occurrence: None)
  Receive Date: 20100621
  Receipt Date: 20100617
  Transmission Date: 20101027
  Serious: Yes (Other)
  Sender: FDA-Public Use
  Company Number: GR-BRISTOL-MYERS SQUIBB COMPANY-15152671

PATIENT
  Age: 75 Year
  Sex: Male

DRUGS (4)
  1. BARACLUDE [Suspect]
     Indication: HEPATITIS B
     Dosage: THERAPY DURATION - 3YR
     Route: 048
     Dates: start: 20070101
  2. SALOSPIR [Concomitant]
  3. SOLOSA [Concomitant]
  4. METFORMIN HCL [Concomitant]

REACTIONS (2)
  - LEUKOPENIA [None]
  - THROMBOCYTOPENIA [None]
